FAERS Safety Report 5672886-4 (Version None)
Quarter: 2008Q1

REPORT INFORMATION
  Report Type: 
  Country: None (occurrence: None)
  Receive Date: 20080319
  Receipt Date: 20080319
  Transmission Date: 20080703
  Serious: Yes (Death)
  Sender: FDA-Public Use
  Company Number: A0696042A

PATIENT
  Age: 38 Year
  Sex: Male

DRUGS (13)
  1. WELLBUTRIN XL [Suspect]
     Indication: DEPRESSION
     Dosage: 150MG PER DAY
     Route: 048
     Dates: start: 20061010, end: 20070815
  2. TEMAZEPAM [Concomitant]
  3. ANDROGEL [Concomitant]
  4. PREVACID [Concomitant]
  5. PREDNISONE [Concomitant]
  6. DIOVAN [Concomitant]
  7. TOPROL [Concomitant]
  8. FLURAZEPAM [Concomitant]
  9. PROCHLORPERAZINE [Concomitant]
  10. ALPRAZOLAM [Concomitant]
  11. REMICADE [Concomitant]
  12. OXYCONTIN [Concomitant]
     Indication: PAIN
  13. CHLORAL HYDRATE [Concomitant]
     Indication: SLEEP DISORDER

REACTIONS (4)
  - DEATH [None]
  - DRUG TOXICITY [None]
  - OVERDOSE [None]
  - PHARMACEUTICAL PRODUCT COMPLAINT [None]
